FAERS Safety Report 9383161 (Version 2)
Quarter: 2013Q3

REPORT INFORMATION
  Report Type: Spontaneous
  Country: FR (occurrence: FR)
  Receive Date: 20130704
  Receipt Date: 20130709
  Transmission Date: 20140515
  Serious: Yes (Life-Threatening, Hospitalization)
  Sender: FDA-Public Use
  Company Number: FR-BRISTOL-MYERS SQUIBB COMPANY-19073634

PATIENT
  Age: 25 Year
  Sex: Male

DRUGS (2)
  1. ABILIFY TABS [Suspect]
     Indication: SCHIZOPHRENIA
     Dates: start: 201110, end: 201111
  2. CLOZAPINE [Suspect]
     Indication: SCHIZOPHRENIA
     Dates: start: 201009

REACTIONS (1)
  - Subileus [Recovered/Resolved]
